FAERS Safety Report 10515812 (Version 1)
Quarter: 2014Q3

REPORT INFORMATION
  Report Type: Spontaneous
  Country: US (occurrence: None)
  Receive Date: 20140926
  Receipt Date: 20140926
  Transmission Date: 20150326
  Serious: No
  Sender: FDA-Public Use
  Company Number: 1000070157

PATIENT
  Age: 39 Year
  Sex: Male

DRUGS (6)
  1. LEVSIN (HYOSCYAMINE SULFATE) [Concomitant]
  2. MARINOL [Concomitant]
     Active Substance: DRONABINOL
  3. KLONOPIN [Concomitant]
     Active Substance: CLONAZEPAM
  4. LINZESS [Suspect]
     Active Substance: LINACLOTIDE
     Indication: CONSTIPATION
     Dosage: 290 MCG (290 MCG, 1 IN 1 D), ORAL
     Route: 048
     Dates: start: 2013
  5. OMEPRAZOLE. [Concomitant]
     Active Substance: OMEPRAZOLE
  6. ONDANSETRON [Concomitant]
     Active Substance: ONDANSETRON

REACTIONS (3)
  - Dyspepsia [None]
  - Drug ineffective [None]
  - Off label use [None]

NARRATIVE: CASE EVENT DATE: 2013
